FAERS Safety Report 15814589 (Version 2)
Quarter: 2019Q1

REPORT INFORMATION
  Report Type: Spontaneous
  Country: US (occurrence: US)
  Receive Date: 20190111
  Receipt Date: 20190208
  Transmission Date: 20190417
  Serious: No
  Sender: FDA-Public Use
  Company Number: US-GE HEALTHCARE LIFE SCIENCES-2018CSU005327

PATIENT
  Sex: Male

DRUGS (22)
  1. CLONIDINE. [Concomitant]
     Active Substance: CLONIDINE
  2. FOLIC ACID. [Concomitant]
     Active Substance: FOLIC ACID
  3. ZOLPIDEM [Concomitant]
     Active Substance: ZOLPIDEM\ZOLPIDEM TARTRATE
  4. DATSCAN [Suspect]
     Active Substance: IODINE\IOFLUPANE I-123
     Indication: PRODUCT USED FOR UNKNOWN INDICATION
  5. PANTOPRAZOLE [Concomitant]
     Active Substance: PANTOPRAZOLE
  6. DATSCAN [Suspect]
     Active Substance: IODINE\IOFLUPANE I-123
     Indication: DIAGNOSTIC PROCEDURE
     Dosage: UNK UNK, SINGLE
     Route: 065
     Dates: start: 20160123, end: 20160123
  7. LISINOPRIL. [Concomitant]
     Active Substance: LISINOPRIL
  8. BETAMETHASONE. [Concomitant]
     Active Substance: BETAMETHASONE
  9. BUPRENORPHINE. [Concomitant]
     Active Substance: BUPRENORPHINE
  10. HYDROCORTISONE. [Concomitant]
     Active Substance: HYDROCORTISONE
  11. MEMANTINE. [Concomitant]
     Active Substance: MEMANTINE
  12. POTASSIUM CHLORIDE. [Concomitant]
     Active Substance: POTASSIUM CHLORIDE
  13. AMITRIPTYLINE [Concomitant]
     Active Substance: AMITRIPTYLINE
     Dosage: 50 MG, AT NIGHT
  14. PROPRANOLOL [Concomitant]
     Active Substance: PROPRANOLOL HYDROCHLORIDE
  15. ACAMPROSATE CALCIUM. [Concomitant]
     Active Substance: ACAMPROSATE CALCIUM
  16. DULOXETINE. [Concomitant]
     Active Substance: DULOXETINE
  17. FUROSEMIDE. [Concomitant]
     Active Substance: FUROSEMIDE
  18. VITAMIN B1 [Concomitant]
     Active Substance: THIAMINE HYDROCHLORIDE
  19. DIAZEPAM. [Concomitant]
     Active Substance: DIAZEPAM
  20. NALOXONE [Concomitant]
     Active Substance: NALOXONE
  21. CLOTRIMAZOLE. [Concomitant]
     Active Substance: CLOTRIMAZOLE
  22. FLUTICASONE. [Concomitant]
     Active Substance: FLUTICASONE
     Route: 045

REACTIONS (2)
  - No adverse event [Recovered/Resolved]
  - False positive investigation result [Recovered/Resolved]

NARRATIVE: CASE EVENT DATE: 20160123
